FAERS Safety Report 8861737 (Version 1)
Quarter: 2012Q4

REPORT INFORMATION
  Report Type: Spontaneous
  Country: US (occurrence: None)
  Receive Date: 20121025
  Receipt Date: 20121025
  Transmission Date: 20130627
  Serious: No
  Sender: FDA-Public Use
  Company Number: None

PATIENT
  Age: 83 Year
  Sex: Male
  Weight: 45.2 kg

DRUGS (2)
  1. DIGOXIN [Suspect]
     Indication: CONGESTIVE HEART FAILURE
     Dosage: 0.125 MG EVERY DAY PO
     Route: 048
     Dates: start: 19990323, end: 20120919
  2. DIGOXIN [Suspect]
     Indication: ATRIAL FIBRILLATION
     Dosage: 0.125 MG EVERY DAY PO
     Route: 048
     Dates: start: 19990323, end: 20120919

REACTIONS (1)
  - Overdose [None]
